FAERS Safety Report 10285949 (Version 1)
Quarter: 2014Q3

REPORT INFORMATION
  Report Type: Spontaneous
  Country: US (occurrence: None)
  Receive Date: 20140703
  Receipt Date: 20140703
  Transmission Date: 20150326
  Serious: Yes (Disabling)
  Sender: FDA-Public Use
  Company Number: None

PATIENT
  Age: 29 Year
  Sex: Male
  Weight: 81.65 kg

DRUGS (1)
  1. BENZONATATE 200MG [Suspect]
     Active Substance: BENZONATATE
     Indication: COUGH
     Dosage: 1 CAPSULE AS NEEDED TAKEN BY MOUTH
     Route: 048
     Dates: start: 20140701, end: 20140701

REACTIONS (3)
  - Chest discomfort [None]
  - Dyspnoea [None]
  - Unevaluable event [None]

NARRATIVE: CASE EVENT DATE: 20140701
